FAERS Safety Report 13181227 (Version 2)
Quarter: 2018Q1

REPORT INFORMATION
  Report Type: Spontaneous
  Country: US (occurrence: US)
  Receive Date: 20170202
  Receipt Date: 20180206
  Transmission Date: 20180508
  Serious: No
  Sender: FDA-Public Use
  Company Number: US-SMITH AND NEPHEW, INC-2016SMT00923

PATIENT
  Age: 50 Year
  Sex: Female
  Weight: 90.7 kg

DRUGS (11)
  1. REGRANEX [Suspect]
     Active Substance: BECAPLERMIN
     Indication: SKIN ULCER
     Dosage: UNK UNK, 1X/DAY
     Route: 061
     Dates: start: 201609, end: 2016
  2. REGRANEX [Suspect]
     Active Substance: BECAPLERMIN
     Dosage: UNK UNK, TWICE
     Route: 061
     Dates: start: 201701, end: 201701
  3. NAPROXEN. [Concomitant]
     Active Substance: NAPROXEN
  4. OXYCONTIN [Concomitant]
     Active Substance: OXYCODONE HYDROCHLORIDE
  5. GLUCOPHAGE [Concomitant]
     Active Substance: METFORMIN HYDROCHLORIDE
  6. METOPROLOL. [Concomitant]
     Active Substance: METOPROLOL
  7. PREDNISONE. [Concomitant]
     Active Substance: PREDNISONE
  8. UNKNOWN CHOLESTEROL MEDICINE [Concomitant]
  9. UNSPECIFIED FLEX PEN [Concomitant]
  10. CLONIDINE. [Concomitant]
     Active Substance: CLONIDINE
  11. AMITRIPTYLINE [Concomitant]
     Active Substance: AMITRIPTYLINE

REACTIONS (2)
  - Application site pain [Recovered/Resolved]
  - Application site erythema [Recovered/Resolved]

NARRATIVE: CASE EVENT DATE: 201609
